FAERS Safety Report 9421793 (Version 3)
Quarter: 2014Q2

REPORT INFORMATION
  Report Type: Spontaneous
  Country: CO (occurrence: CO)
  Receive Date: 20130726
  Receipt Date: 20140622
  Transmission Date: 20141212
  Serious: Yes (Hospitalization, Other)
  Sender: FDA-Public Use
  Company Number: CO-AMGEN-COLSP2013051761

PATIENT
  Age: 58 Year
  Sex: Female

DRUGS (11)
  1. ENBREL [Suspect]
     Indication: RHEUMATOID ARTHRITIS
     Dosage: 50 MG, WEEKLY
     Route: 058
     Dates: start: 201208
  2. METHOTREXATE [Suspect]
     Indication: RHEUMATOID ARTHRITIS
     Dosage: 6 TABLETS THE SAME DAY, WEEKLY
     Route: 048
     Dates: start: 2011, end: 201302
  3. METHOTREXATE [Suspect]
     Dosage: 3 TABLETS ON SATURDAY AND 3 TABLETS ON SUNDAY, WEEKLY
     Route: 048
     Dates: start: 201306
  4. TRAMADOL [Suspect]
     Indication: PAIN
     Dosage: 5 DROPS, 1X/DAY
     Route: 048
     Dates: start: 2012
  5. TRAMADOL [Suspect]
     Dosage: 15 DROPS, 1X/DAY
     Route: 048
     Dates: start: 2012, end: 20121110
  6. TRAMADOL [Suspect]
     Dosage: 20 DROPS, 1X/DAY
     Route: 048
     Dates: start: 20121110
  7. PREDNISOLONE [Concomitant]
     Indication: RHEUMATOID ARTHRITIS
     Dosage: 5 MG, 1X/DAY
     Route: 048
     Dates: start: 2010
  8. ARAVA [Concomitant]
     Indication: RHEUMATOID ARTHRITIS
     Dosage: UNK UNK, QD
     Route: 048
     Dates: start: 2012
  9. ARAVA [Concomitant]
     Dosage: UNK
  10. SALAGEN [Concomitant]
     Indication: PAIN
     Dosage: UNK UNK, QD
     Route: 048
  11. SALAGEN [Concomitant]
     Dosage: UNK

REACTIONS (11)
  - Tachycardia [Unknown]
  - Blood pressure increased [Unknown]
  - Thrombosis [Unknown]
  - Arthropathy [Unknown]
  - Joint swelling [Unknown]
  - Procedural pain [Unknown]
  - Hypersensitivity [Unknown]
  - Osteoarthritis [Not Recovered/Not Resolved]
  - Joint dislocation [Not Recovered/Not Resolved]
  - Arterial occlusive disease [Recovered/Resolved]
  - Arthralgia [Not Recovered/Not Resolved]
